FAERS Safety Report 15178316 (Version 1)
Quarter: 2018Q3

REPORT INFORMATION
  Report Type: Spontaneous
  Country: GB (occurrence: GB)
  Receive Date: 20180721
  Receipt Date: 20180721
  Transmission Date: 20181010
  Serious: Yes (Death, Other)
  Sender: FDA-Public Use
  Company Number: GB-AUROBINDO-AUR-APL-2018-035504

PATIENT
  Sex: Female

DRUGS (3)
  1. PARACETAMOL [Concomitant]
     Active Substance: ACETAMINOPHEN
     Indication: PRODUCT USED FOR UNKNOWN INDICATION
     Dosage: UNK
     Route: 042
  2. TAZOCIN [Concomitant]
     Active Substance: PIPERACILLIN SODIUM\TAZOBACTAM SODIUM
     Indication: PNEUMONIA
     Dosage: 13.5 G, QD
     Route: 065
     Dates: start: 20180323, end: 20180325
  3. MEROPENEM. [Suspect]
     Active Substance: MEROPENEM
     Indication: PRODUCT USED FOR UNKNOWN INDICATION
     Dosage: 1 DF, Q12H
     Route: 065
     Dates: start: 20180326

REACTIONS (12)
  - Hypersensitivity [Fatal]
  - Pharyngeal oedema [Unknown]
  - Dyspnoea [Unknown]
  - Cold sweat [Unknown]
  - Loss of consciousness [Unknown]
  - Peripheral swelling [Unknown]
  - Abdominal pain upper [Unknown]
  - Swelling [Unknown]
  - Pruritus generalised [Unknown]
  - Flushing [Unknown]
  - Contraindicated drug prescribed [Unknown]
  - Erythema [Unknown]

NARRATIVE: CASE EVENT DATE: 20180326
